FAERS Safety Report 25150744 (Version 5)
Quarter: 2025Q4

REPORT INFORMATION
  Report Type: Spontaneous
  Country: US (occurrence: US)
  Receive Date: 20250402
  Receipt Date: 20251019
  Transmission Date: 20260117
  Serious: Yes (Other)
  Sender: SANOFI AVENTIS
  Company Number: US-SA-2025SA092143

PATIENT
  Age: 64 Year
  Sex: Female

DRUGS (1)
  1. KEVZARA [Suspect]
     Active Substance: SARILUMAB
     Indication: Polymyalgia rheumatica
     Dosage: 200 MG, QOW
     Route: 058
     Dates: start: 202412

REACTIONS (11)
  - Rheumatoid arthritis [Unknown]
  - Pain [Unknown]
  - Injection site scar [Unknown]
  - Mood altered [Unknown]
  - Tendonitis [Not Recovered/Not Resolved]
  - Tinnitus [Unknown]
  - Myalgia [Unknown]
  - Gait disturbance [Unknown]
  - Malaise [Unknown]
  - Mobility decreased [Unknown]
  - Fatigue [Unknown]

NARRATIVE: CASE EVENT DATE: 20250101
